FAERS Safety Report 5098035-1 (Version None)
Quarter: 2006Q3

REPORT INFORMATION
  Report Type: 
  Country: None (occurrence: None)
  Receive Date: 20060906
  Receipt Date: 20060829
  Transmission Date: 20061208
  Serious: Yes (Other)
  Sender: FDA-Public Use
  Company Number: JP-AVENTIS-200619025GDDC

PATIENT
  Age: 58 Year
  Sex: Male

DRUGS (3)
  1. FLUOROURACIL [Suspect]
     Indication: HYPOPHARYNGEAL CANCER
     Dosage: FREQUENCY: CONTINUOUS
     Route: 042
  2. PIRARUBICIN [Concomitant]
     Indication: HYPOPHARYNGEAL CANCER
     Route: 042
  3. CISPLATIN [Concomitant]
     Indication: HYPOPHARYNGEAL CANCER
     Route: 042

REACTIONS (4)
  - CONVULSION [None]
  - EAR INJURY [None]
  - LEUKOENCEPHALOPATHY [None]
  - RESTLESSNESS [None]
